FAERS Safety Report 5762045-9 (Version None)
Quarter: 2008Q2

REPORT INFORMATION
  Report Type: 
  Country: None (occurrence: None)
  Receive Date: 20080603
  Receipt Date: 20080520
  Transmission Date: 20081010
  Serious: Yes (Hospitalization)
  Sender: FDA-Public Use
  Company Number: 2008MB000061

PATIENT
  Age: 25 Year
  Sex: Female
  Weight: 84 kg

DRUGS (6)
  1. CEPHALEXIN [Suspect]
     Indication: URINARY TRACT INFECTION
     Dosage: 500 MG; PO
     Route: 048
     Dates: start: 20080425, end: 20080429
  2. FOLIC ACID [Concomitant]
  3. HYDROXOCOBALAMIN [Concomitant]
  4. LANSOPRAZOLE [Concomitant]
  5. MOTILIUM /00498202/ [Concomitant]
  6. ZOPICLONE [Concomitant]

REACTIONS (11)
  - ALANINE AMINOTRANSFERASE INCREASED [None]
  - BLISTER [None]
  - BLOOD BILIRUBIN INCREASED [None]
  - CONTUSION [None]
  - FLUID RETENTION [None]
  - GAMMA-GLUTAMYLTRANSFERASE INCREASED [None]
  - HAEMOGLOBIN DECREASED [None]
  - HYPOAESTHESIA FACIAL [None]
  - MOUTH ULCERATION [None]
  - SWELLING FACE [None]
  - YELLOW SKIN [None]
